FAERS Safety Report 13523202 (Version 1)
Quarter: 2017Q2

REPORT INFORMATION
  Report Type: Spontaneous
  Country: US (occurrence: US)
  Receive Date: 20170508
  Receipt Date: 20170508
  Transmission Date: 20170830
  Serious: No
  Sender: FDA-Public Use
  Company Number: US-ASTRAZENECA-2017SE46186

PATIENT
  Age: 61 Year
  Sex: Male

DRUGS (9)
  1. LISINOPRIL. [Suspect]
     Active Substance: LISINOPRIL
     Dosage: 10.0MG UNKNOWN
     Route: 048
  2. ASPIRIN. [Concomitant]
     Active Substance: ASPIRIN
     Dosage: 81.0MG UNKNOWN
     Route: 065
  3. METOPROLOL. [Suspect]
     Active Substance: METOPROLOL
     Route: 065
  4. MULTIVITAMIN [Concomitant]
     Active Substance: VITAMINS
     Route: 065
  5. GLUCAPHAGE [Concomitant]
     Dosage: 1000.0MG UNKNOWN
     Route: 065
  6. ATORVASTATIN [Concomitant]
     Active Substance: ATORVASTATIN
     Dosage: 40.0MG UNKNOWN
     Route: 065
  7. BRILINTA [Suspect]
     Active Substance: TICAGRELOR
     Route: 048
  8. VITAMIN D [Concomitant]
     Active Substance: CHOLECALCIFEROL
     Route: 065
  9. COQ10 [Concomitant]
     Active Substance: UBIDECARENONE
     Dosage: 200.0MG UNKNOWN
     Route: 065

REACTIONS (2)
  - Rash [Recovered/Resolved]
  - Skin exfoliation [Recovered/Resolved]
